FAERS Safety Report 23287757 (Version 1)
Quarter: 2023Q4

REPORT INFORMATION
  Report Type: Spontaneous
  Country: DE (occurrence: DE)
  Receive Date: 20231212
  Receipt Date: 20231212
  Transmission Date: 20240110
  Serious: Yes (Hospitalization, Other)
  Sender: FDA-Public Use
  Company Number: DE-MSNLABS-2023MSNLIT00020

PATIENT
  Age: 46 Year
  Sex: Male

DRUGS (1)
  1. FINGOLIMOD [Suspect]
     Active Substance: FINGOLIMOD
     Indication: Relapsing-remitting multiple sclerosis
     Dosage: UNK
     Route: 065

REACTIONS (9)
  - Monkeypox [Recovered/Resolved]
  - Lymphopenia [Recovered/Resolved]
  - Hyperbilirubinaemia [Unknown]
  - Gastrointestinal haemorrhage [Unknown]
  - Haematuria [Unknown]
  - Leukopenia [Recovered/Resolved]
  - Cellulitis [Unknown]
  - Urinary retention [Unknown]
  - Proctitis [Unknown]
